FAERS Safety Report 13077295 (Version 2)
Quarter: 2017Q1

REPORT INFORMATION
  Report Type: Spontaneous
  Country: CN (occurrence: CN)
  Receive Date: 20161230
  Receipt Date: 20170123
  Transmission Date: 20170428
  Serious: Yes (Death)
  Sender: FDA-Public Use
  Company Number: CN-ASTRAZENECA-2016SF38343

PATIENT
  Age: 95 Year
  Sex: Male

DRUGS (3)
  1. ANTI-INFLAMMATORY AGENTS [Concomitant]
     Active Substance: UNSPECIFIED INGREDIENT
  2. SEROQUEL [Suspect]
     Active Substance: QUETIAPINE FUMARATE
     Indication: POOR QUALITY SLEEP
     Route: 048
     Dates: start: 201607
  3. DIURETICS [Concomitant]
     Active Substance: UNSPECIFIED INGREDIENT

REACTIONS (8)
  - Respiratory failure [Fatal]
  - Blood pressure decreased [Recovering/Resolving]
  - Discomfort [Unknown]
  - Off label use [Unknown]
  - Renal failure [Fatal]
  - Hypoaesthesia oral [Unknown]
  - Product use issue [Unknown]
  - Cardiac failure [Fatal]
